FAERS Safety Report 6377600-5 (Version None)
Quarter: 2009Q3

REPORT INFORMATION
  Report Type: 
  Country: None (occurrence: None)
  Receive Date: 20090923
  Receipt Date: 20090923
  Transmission Date: 20100115
  Serious: Yes (Hospitalization)
  Sender: FDA-Public Use
  Company Number: None

PATIENT
  Age: 56 Year
  Sex: Female
  Weight: 94.3 kg

DRUGS (12)
  1. GLARGINE [Suspect]
     Indication: TYPE 1 DIABETES MELLITUS
     Dosage: 16 UNITS SQ Q PM, PTA
     Route: 058
  2. ASPIRIN [Concomitant]
  3. IRBESARTAN [Concomitant]
  4. CINCALET [Concomitant]
  5. ISOSORBIDE [Concomitant]
  6. LABETALOL HCL [Concomitant]
  7. GLARGINE [Concomitant]
  8. METOPROLOL [Concomitant]
  9. NEFEDIPINE [Concomitant]
  10. SERELAMER [Concomitant]
  11. RENAL CUPS [Concomitant]
  12. MULTI-VITAMIN [Concomitant]

REACTIONS (8)
  - ASTHENIA [None]
  - BLOOD GLUCOSE DECREASED [None]
  - BLOOD GLUCOSE INCREASED [None]
  - CHILLS [None]
  - COUGH [None]
  - DYSPNOEA [None]
  - HYPERTENSIVE CRISIS [None]
  - LETHARGY [None]
